FAERS Safety Report 8487852-3 (Version None)
Quarter: 2012Q3

REPORT INFORMATION
  Report Type: 
  Country: None (occurrence: None)
  Receive Date: 20120705
  Receipt Date: 20120626
  Transmission Date: 20120928
  Serious: Yes (Hospitalization)
  Sender: FDA-Public Use
  Company Number: US-US-EMD SERONO, INC.-7140343

PATIENT
  Sex: Female
  Weight: 88 kg

DRUGS (2)
  1. REBIF [Suspect]
     Indication: MULTIPLE SCLEROSIS
     Route: 058
     Dates: start: 20050418, end: 20120301
  2. REBIF [Suspect]
     Dates: start: 20120501

REACTIONS (2)
  - INFECTION [None]
  - INTESTINAL PERFORATION [None]
